FAERS Safety Report 21325199 (Version 3)
Quarter: 2022Q4

REPORT INFORMATION
  Report Type: Spontaneous
  Country: US (occurrence: US)
  Receive Date: 20220912
  Receipt Date: 20221027
  Transmission Date: 20230113
  Serious: Yes (Death)
  Sender: FDA-Public Use
  Company Number: US-KARYOPHARM-2022KPT001006

PATIENT

DRUGS (10)
  1. XPOVIO [Suspect]
     Active Substance: SELINEXOR
     Indication: Brain neoplasm malignant
     Dosage: 80 MG, WEEKLY
     Route: 048
     Dates: start: 202208
  2. XPOVIO [Suspect]
     Active Substance: SELINEXOR
     Dosage: 60 MG, WEEKLY
     Route: 048
     Dates: start: 2022, end: 20221017
  3. ALPRAZOLAM [Concomitant]
     Active Substance: ALPRAZOLAM
  4. BACTRIM [Concomitant]
     Active Substance: SULFAMETHOXAZOLE\TRIMETHOPRIM
  5. BRIVIACT [Concomitant]
     Active Substance: BRIVARACETAM
  6. DEXAMETHASONE [Concomitant]
     Active Substance: DEXAMETHASONE
  7. KEPPRA [Concomitant]
     Active Substance: LEVETIRACETAM
  8. TEMODAR [Concomitant]
     Active Substance: TEMOZOLOMIDE
  9. ZOFRAN [Concomitant]
     Active Substance: ONDANSETRON HYDROCHLORIDE
  10. ELIQUIS [Concomitant]
     Active Substance: APIXABAN

REACTIONS (4)
  - Death [Fatal]
  - Asthenia [Unknown]
  - Confusional state [Unknown]
  - Off label use [Unknown]

NARRATIVE: CASE EVENT DATE: 20220101
